FAERS Safety Report 4717987-X (Version None)
Quarter: 2005Q3

REPORT INFORMATION
  Report Type: 
  Country: None (occurrence: None)
  Receive Date: 20050718
  Receipt Date: 20050215
  Transmission Date: 20060218
  Serious: No
  Sender: FDA-Public Use
  Company Number: 2005000380

PATIENT
  Age: 55 Year
  Sex: Female

DRUGS (7)
  1. TARCEVA [Suspect]
     Indication: NON-SMALL CELL LUNG CANCER
     Dosage: 150 MG (QD), ORAL
     Route: 048
     Dates: start: 20050102, end: 20050211
  2. OXYCODONE HCL [Concomitant]
  3. LEVOTHYROXINE SODIUM [Concomitant]
  4. ESTROGENS CONJUGATED [Concomitant]
  5. LEXAPRO [Concomitant]
  6. POTASSIUM CHLORIDE [Concomitant]
  7. LORAZEPAM [Concomitant]

REACTIONS (2)
  - HEADACHE [None]
  - MUSCULOSKELETAL STIFFNESS [None]
